FAERS Safety Report 16764185 (Version 1)
Quarter: 2019Q3

REPORT INFORMATION
  Report Type: Spontaneous
  Country: US (occurrence: US)
  Receive Date: 20190902
  Receipt Date: 20190902
  Transmission Date: 20191005
  Serious: Yes (Hospitalization)
  Sender: FDA-Public Use
  Company Number: US-BRISTOL-MYERS SQUIBB COMPANY-BMS-2019-084076

PATIENT
  Age: 54 Year
  Sex: Male

DRUGS (3)
  1. HYDROXYUREA. [Suspect]
     Active Substance: HYDROXYUREA
     Indication: PRODUCT USED FOR UNKNOWN INDICATION
     Dosage: 500 MILLIGRAM, QD
     Route: 048
  2. PONATINIB [Suspect]
     Active Substance: PONATINIB
     Indication: CHRONIC MYELOID LEUKAEMIA
     Dosage: 45 MILLIGRAM, QD
     Route: 048
     Dates: start: 201402
  3. HYDROXYUREA. [Suspect]
     Active Substance: HYDROXYUREA
     Indication: CHRONIC MYELOID LEUKAEMIA
     Dosage: 1500 MILLIGRAM, QD
     Route: 048

REACTIONS (7)
  - Decreased appetite [Unknown]
  - Blood count abnormal [Unknown]
  - Malaise [Unknown]
  - Muscle spasms [Unknown]
  - Dehydration [Unknown]
  - Peripheral coldness [Unknown]
  - Joint effusion [Recovering/Resolving]

NARRATIVE: CASE EVENT DATE: 20180803
